FAERS Safety Report 8828257 (Version 1)
Quarter: 2012Q4

REPORT INFORMATION
  Report Type: 
  Country: DE (occurrence: DE)
  Receive Date: 20121005
  Receipt Date: 20121005
  Transmission Date: 20130627
  Serious: Yes (Other)
  Sender: FDA-Public Use
  Company Number: DE-ABBOTT-12P-062-0989718-00

PATIENT
  Age: 80 Year
  Sex: Male

DRUGS (5)
  1. TRENANTONE [Suspect]
     Indication: PROSTATE CANCER METASTATIC
     Route: 058
     Dates: start: 20120410
  2. TAMSULOSIN [Concomitant]
     Indication: PRODUCT USED FOR UNKNOWN INDICATION
  3. METOPROLOL [Concomitant]
     Indication: PRODUCT USED FOR UNKNOWN INDICATION
  4. METFORMIN [Concomitant]
     Indication: PRODUCT USED FOR UNKNOWN INDICATION
  5. RAMIPRIL [Concomitant]
     Indication: PRODUCT USED FOR UNKNOWN INDICATION

REACTIONS (3)
  - Injection site ulcer [Recovering/Resolving]
  - Injection site nodule [Not Recovered/Not Resolved]
  - Injection site abscess [Not Recovered/Not Resolved]
